FAERS Safety Report 24652737 (Version 2)
Quarter: 2025Q3

REPORT INFORMATION
  Report Type: Other
  Country: US (occurrence: US)
  Receive Date: 20241122
  Receipt Date: 20250902
  Transmission Date: 20251020
  Serious: No
  Sender: SIGA TECHNOLOGIES, INC.
  Company Number: US-SIGA Technologies, Inc.-2165660

PATIENT

DRUGS (2)
  1. TPOXX [Suspect]
     Active Substance: TECOVIRIMAT
     Indication: Monkeypox
  2. TPOXX [Suspect]
     Active Substance: TECOVIRIMAT

REACTIONS (10)
  - Headache [Unknown]
  - Tremor [Unknown]
  - Dizziness [Unknown]
  - Abdominal pain [Unknown]
  - Acute kidney injury [Unknown]
  - Fatigue [Unknown]
  - Urticaria [Unknown]
  - Hepatic enzyme increased [Unknown]
  - Vomiting [Unknown]
  - Nausea [Unknown]
